FAERS Safety Report 12470876 (Version 1)
Quarter: 2016Q2

REPORT INFORMATION
  Report Type: Spontaneous
  Country: US (occurrence: None)
  Receive Date: 20160615
  Receipt Date: 20160615
  Transmission Date: 20160815
  Serious: Yes (Hospitalization)
  Sender: FDA-Public Use
  Company Number: None

PATIENT
  Age: 88 Year
  Sex: Female
  Weight: 68.04 kg

DRUGS (14)
  1. NITROFURANTOIN MER [Suspect]
     Active Substance: NITROFURANTOIN
     Indication: URINARY TRACT INFECTION
     Route: 048
     Dates: start: 20160606, end: 20160606
  2. HEARING AIDS [Concomitant]
  3. GLASSES [Concomitant]
  4. AREDS2 [Concomitant]
  5. FISH OIL [Concomitant]
     Active Substance: FISH OIL
  6. VITAMIND3 [Concomitant]
  7. METOPROLOL TARTA [Concomitant]
  8. COUMADIN [Concomitant]
     Active Substance: WARFARIN SODIUM
  9. ESTRACE [Concomitant]
     Active Substance: ESTRADIOL
  10. GABAPENTIN. [Concomitant]
     Active Substance: GABAPENTIN
  11. LOSARTAN-HTCZ [Concomitant]
  12. VITAMIN B12 [Concomitant]
     Active Substance: CYANOCOBALAMIN
  13. V-PAP [Concomitant]
  14. REFRESH [Concomitant]
     Active Substance: UNSPECIFIED INGREDIENT

REACTIONS (9)
  - Seizure [None]
  - No reaction on previous exposure to drug [None]
  - Discomfort [None]
  - Nausea [None]
  - Dizziness [None]
  - Pruritus generalised [None]
  - Fatigue [None]
  - Generalised erythema [None]
  - Vertigo [None]

NARRATIVE: CASE EVENT DATE: 20160606
